FAERS Safety Report 6859152-6 (Version None)
Quarter: 2010Q3

REPORT INFORMATION
  Report Type: 
  Country: None (occurrence: None)
  Receive Date: 20100719
  Receipt Date: 20080218
  Transmission Date: 20110219
  Serious: No
  Sender: FDA-Public Use
  Company Number: US-PFIZER INC-2008017985

PATIENT
  Sex: Female

DRUGS (3)
  1. CHANTIX [Suspect]
     Indication: SMOKING CESSATION THERAPY
     Dates: start: 20080101, end: 20080213
  2. DRUG USED IN DIABETES [Concomitant]
     Indication: DIABETES MELLITUS
  3. DRUG, UNSPECIFIED [Concomitant]
     Indication: RHEUMATOID ARTHRITIS

REACTIONS (7)
  - ABNORMAL BEHAVIOUR [None]
  - ABNORMAL DREAMS [None]
  - BLOOD GLUCOSE INCREASED [None]
  - CRYING [None]
  - DEPRESSION [None]
  - GASTRIC DISORDER [None]
  - NAUSEA [None]
